FAERS Safety Report 5893254-6 (Version None)
Quarter: 2008Q3

REPORT INFORMATION
  Report Type: 
  Country: None (occurrence: None)
  Receive Date: 20080922
  Receipt Date: 20080922
  Transmission Date: 20090109
  Serious: No
  Sender: FDA-Public Use
  Company Number: None

PATIENT
  Sex: Female
  Weight: 75.9 kg

DRUGS (7)
  1. TAXOL [Suspect]
     Dosage: 239 MG
     Dates: end: 20080819
  2. CLARITIN [Concomitant]
  3. COMPAZINE [Concomitant]
  4. MOTRIN [Concomitant]
  5. ULTRAM [Concomitant]
  6. ZOFRAN [Concomitant]
  7. DECADRON [Concomitant]

REACTIONS (1)
  - NEUTROPHIL COUNT DECREASED [None]
